FAERS Safety Report 7828293-9 (Version None)
Quarter: 2011Q4

REPORT INFORMATION
  Report Type: 
  Country: None (occurrence: None)
  Receive Date: 20111020
  Receipt Date: 20111016
  Transmission Date: 20120403
  Serious: Yes (Other)
  Sender: FDA-Public Use
  Company Number: US-PFIZER INC-2011247335

PATIENT
  Sex: Female

DRUGS (2)
  1. NEURONTIN [Suspect]
     Indication: ARTHRALGIA
  2. NEURONTIN [Suspect]
     Indication: CARPAL TUNNEL DECOMPRESSION
     Dosage: 200 MG, 2X/DAY
     Route: 048
     Dates: start: 20111012

REACTIONS (3)
  - VISUAL IMPAIRMENT [None]
  - BACK PAIN [None]
  - MUSCLE INJURY [None]
